FAERS Safety Report 24992067 (Version 2)
Quarter: 2025Q1

REPORT INFORMATION
  Report Type: Spontaneous
  Country: JP (occurrence: JP)
  Receive Date: 20250220
  Receipt Date: 20250325
  Transmission Date: 20250409
  Serious: Yes (Hospitalization, Other)
  Sender: UCB
  Company Number: JP-UCBJ-CD202502171UCBPHAPROD

PATIENT
  Age: 3 Year
  Sex: Female
  Weight: 12.7 kg

DRUGS (4)
  1. LEVETIRACETAM [Suspect]
     Active Substance: LEVETIRACETAM
     Indication: Epilepsy
     Route: 048
  2. PRANLUKAST [Suspect]
     Active Substance: PRANLUKAST
     Indication: Childhood asthma
     Route: 048
  3. GABAPENTIN [Suspect]
     Active Substance: GABAPENTIN
     Indication: Epilepsy
  4. CLONAZEPAM [Concomitant]
     Active Substance: CLONAZEPAM
     Indication: Epilepsy

REACTIONS (7)
  - Interstitial lung disease [Recovered/Resolved]
  - Urinary retention [Unknown]
  - Hypothermia [Recovered/Resolved]
  - Somnolence [Unknown]
  - Platelet count decreased [Recovered/Resolved]
  - Hepatic enzyme increased [Recovered/Resolved]
  - Off label use [Unknown]
